FAERS Safety Report 18729356 (Version 2)
Quarter: 2021Q1

REPORT INFORMATION
  Report Type: Report from Study
  Country: None (occurrence: NL)
  Receive Date: 20210112
  Receipt Date: 20210115
  Transmission Date: 20210419
  Serious: Yes (Death)
  Sender: FDA-Public Use
  Company Number: NL-ABBVIE-20K-114-3326001-00

PATIENT
  Age: 78 Year
  Sex: Male

DRUGS (8)
  1. MACROGOL [Concomitant]
     Active Substance: POLYETHYLENE GLYCOLS
     Indication: ABNORMAL FAECES
  2. SYMMETREL [Concomitant]
     Active Substance: AMANTADINE HYDROCHLORIDE
     Indication: PRODUCT USED FOR UNKNOWN INDICATION
  3. DUODOPA [Suspect]
     Active Substance: CARBIDOPA\LEVODOPA
     Dosage: 20 MG/ML 5 MG/ML
     Route: 050
  4. CLOZAPIN [Concomitant]
     Active Substance: CLOZAPINE
     Indication: HALLUCINATION
  5. DUODOPA [Suspect]
     Active Substance: CARBIDOPA\LEVODOPA
     Dosage: MD: 7.4 ML; CD: 4.2 ML/H; ED: 2.5 ML
     Route: 050
  6. DUODOPA [Suspect]
     Active Substance: CARBIDOPA\LEVODOPA
     Route: 050
  7. DUODOPA [Suspect]
     Active Substance: CARBIDOPA\LEVODOPA
     Indication: PARKINSON^S DISEASE
     Dosage: MD: 7.4 ML; CD: 4.4 ML/H; ED: 2.5 ML
     Route: 050
     Dates: start: 20180917
  8. RIVASTIGMINE PATCHES [Concomitant]
     Indication: HALLUCINATION

REACTIONS (23)
  - Diarrhoea [Unknown]
  - Death [Fatal]
  - Daydreaming [Not Recovered/Not Resolved]
  - Fibroma [Not Recovered/Not Resolved]
  - Constipation [Unknown]
  - Dyskinesia [Not Recovered/Not Resolved]
  - Hallucination [Not Recovered/Not Resolved]
  - Bedridden [Not Recovered/Not Resolved]
  - Pneumonia [Not Recovered/Not Resolved]
  - Unevaluable event [Not Recovered/Not Resolved]
  - Unevaluable event [Not Recovered/Not Resolved]
  - Memory impairment [Not Recovered/Not Resolved]
  - On and off phenomenon [Unknown]
  - Restlessness [Unknown]
  - Confusional state [Unknown]
  - Confusional state [Not Recovered/Not Resolved]
  - Cognitive linguistic deficit [Not Recovered/Not Resolved]
  - Cognitive disorder [Not Recovered/Not Resolved]
  - Fine motor skill dysfunction [Not Recovered/Not Resolved]
  - Hyperkinesia [Recovering/Resolving]
  - Device dislocation [Unknown]
  - Muscle rigidity [Unknown]
  - Overdose [Not Recovered/Not Resolved]

NARRATIVE: CASE EVENT DATE: 2020
